FAERS Safety Report 9919132 (Version 1)
Quarter: 2014Q1

REPORT INFORMATION
  Report Type: Not Available
  Country: US (occurrence: US)
  Receive Date: 20140224
  Receipt Date: 20140224
  Transmission Date: 20141002
  Serious: No
  Sender: FDA-Public Use
  Company Number: US-AMARIN PHARMA, INC.-2013AMR000090

PATIENT
  Age: 33 Year
  Sex: Female
  Weight: 50.85 kg

DRUGS (3)
  1. VASCEPA [Suspect]
     Indication: PRODUCT USED FOR UNKNOWN INDICATION
     Route: 065
     Dates: start: 201305
  2. BIOTIN [Concomitant]
     Indication: HAIR DISORDER
     Route: 065
  3. ACETIX [Concomitant]
     Indication: PRODUCT USED FOR UNKNOWN INDICATION
     Route: 065

REACTIONS (1)
  - Blood triglycerides increased [Not Recovered/Not Resolved]
